FAERS Safety Report 7355318-X (Version None)
Quarter: 2011Q1

REPORT INFORMATION
  Report Type: 
  Country: None (occurrence: None)
  Receive Date: 20110316
  Receipt Date: 20110315
  Transmission Date: 20110831
  Serious: Yes (Hospitalization)
  Sender: FDA-Public Use
  Company Number: FR-ROCHE-727535

PATIENT
  Sex: Female
  Weight: 48 kg

DRUGS (10)
  1. KARDEGIC [Concomitant]
     Route: 048
  2. MOPRAL [Concomitant]
     Route: 048
  3. ROACTEMRA [Suspect]
     Indication: RHEUMATOID ARTHRITIS
     Dosage: FORM: INFUSION, FREQUENCY: CYCLE
     Route: 042
     Dates: start: 20100301, end: 20100824
  4. ARAVA [Concomitant]
     Indication: RHEUMATOID ARTHRITIS
     Route: 048
     Dates: start: 20100301
  5. CORTANCYL [Concomitant]
     Indication: RHEUMATOID ARTHRITIS
     Route: 048
     Dates: start: 20000601
  6. PROTELOS [Concomitant]
     Indication: OSTEOPOROSIS
     Route: 048
     Dates: start: 20070901
  7. CACIT D3 [Concomitant]
     Indication: OSTEOPOROSIS
     Route: 048
  8. APRANAX [Concomitant]
     Indication: RHEUMATOID ARTHRITIS
     Route: 048
     Dates: start: 20090701
  9. SIMVASTATIN [Concomitant]
     Route: 048
  10. NISIS [Concomitant]
     Indication: HYPERTENSION
     Route: 048
     Dates: start: 20080101

REACTIONS (2)
  - ANGIOEDEMA [None]
  - PRURITUS [None]
